FAERS Safety Report 9362674 (Version 1)
Quarter: 2013Q2

REPORT INFORMATION
  Report Type: Spontaneous
  Country: US (occurrence: US)
  Receive Date: 20130622
  Receipt Date: 20130622
  Transmission Date: 20140414
  Serious: No
  Sender: FDA-Public Use
  Company Number: US-US-EMD SERONO, INC.-7148051

PATIENT
  Age: 42 Year
  Sex: Female
  Weight: 134 kg

DRUGS (3)
  1. REBIF [Suspect]
     Indication: MULTIPLE SCLEROSIS
     Route: 058
     Dates: start: 20120611
  2. REBIF [Suspect]
     Route: 058
     Dates: start: 201206
  3. REBIF [Suspect]
     Route: 058
     Dates: start: 201207

REACTIONS (1)
  - Contusion [Unknown]
